FAERS Safety Report 11926767 (Version 4)
Quarter: 2016Q1

REPORT INFORMATION
  Report Type: Spontaneous
  Country: US (occurrence: US)
  Receive Date: 20160119
  Receipt Date: 20160302
  Transmission Date: 20160526
  Serious: Yes (Hospitalization)
  Sender: FDA-Public Use
  Company Number: US-BAYER-2016-006277

PATIENT
  Age: 49 Year
  Sex: Female

DRUGS (11)
  1. AMBIEN [Concomitant]
     Active Substance: ZOLPIDEM TARTRATE
  2. METOLAZONE. [Concomitant]
     Active Substance: METOLAZONE
  3. CELEXA [Concomitant]
     Active Substance: CITALOPRAM HYDROBROMIDE
  4. SILDENAFIL. [Concomitant]
     Active Substance: SILDENAFIL
  5. GLIMEPIRIDE. [Concomitant]
     Active Substance: GLIMEPIRIDE
  6. ADEMPAS [Suspect]
     Active Substance: RIOCIGUAT
     Indication: PULMONARY ARTERIAL HYPERTENSION
     Dosage: 1 NG, UNK
     Route: 048
     Dates: start: 2015
  7. LASIX [Concomitant]
     Active Substance: FUROSEMIDE
  8. XANAX [Concomitant]
     Active Substance: ALPRAZOLAM
  9. AMBRISENTAN [Suspect]
     Active Substance: AMBRISENTAN
     Indication: PULMONARY ARTERIAL HYPERTENSION
     Dosage: 10 MG, QD
     Dates: start: 20140403, end: 20160127
  10. METFORMIN [Concomitant]
     Active Substance: METFORMIN HYDROCHLORIDE
  11. VENTOLIN HFA [Concomitant]
     Active Substance: ALBUTEROL SULFATE

REACTIONS (9)
  - Sleep apnoea syndrome [None]
  - Biopsy liver [Unknown]
  - Post procedural haemorrhage [Unknown]
  - Swelling [Recovering/Resolving]
  - Biopsy [Unknown]
  - Peripheral swelling [Unknown]
  - Oedema [Recovered/Resolved]
  - Cholecystectomy [Recovered/Resolved]
  - Adverse event [None]

NARRATIVE: CASE EVENT DATE: 20150104
